FAERS Safety Report 22334355 (Version 1)
Quarter: 2023Q2

REPORT INFORMATION
  Report Type: Report from Study
  Country: CO (occurrence: CO)
  Receive Date: 20230517
  Receipt Date: 20230517
  Transmission Date: 20230722
  Serious: Yes (Other)
  Sender: FDA-Public Use
  Company Number: CO-ABBVIE-4243123

PATIENT
  Age: 64 Year
  Sex: Male
  Weight: 72 kg

DRUGS (2)
  1. HUMIRA [Suspect]
     Active Substance: ADALIMUMAB
     Indication: Ankylosing spondylitis
     Dosage: CITRATE FREE FORM STRENGTH: 40 MG
     Route: 058
     Dates: end: 20230413
  2. HUMIRA [Suspect]
     Active Substance: ADALIMUMAB
     Dosage: CITRATE FREE FORM STRENGTH: 40 MG
     Route: 058
     Dates: end: 20221201

REACTIONS (3)
  - Tooth abscess [Recovered/Resolved]
  - Tooth disorder [Unknown]
  - Tooth loss [Recovered/Resolved]

NARRATIVE: CASE EVENT DATE: 20221201
